FAERS Safety Report 10211735 (Version 1)
Quarter: 2014Q2

REPORT INFORMATION
  Report Type: Spontaneous
  Country: None (occurrence: None)
  Receive Date: 20140528
  Receipt Date: 20140528
  Transmission Date: 20141212
  Serious: Yes (Hospitalization)
  Sender: FDA-Public Use
  Company Number: 153156

PATIENT
  Age: 62 Year
  Sex: Male

DRUGS (1)
  1. ALLOPURINOL [Suspect]

REACTIONS (5)
  - Drug reaction with eosinophilia and systemic symptoms [None]
  - Goitre [None]
  - Hyperthyroidism [None]
  - Basedow^s disease [None]
  - Histiocytosis haematophagic [None]
